FAERS Safety Report 10746105 (Version 2)
Quarter: 2015Q2

REPORT INFORMATION
  Report Type: Spontaneous
  Country: US (occurrence: CA)
  Receive Date: 20150128
  Receipt Date: 20150521
  Transmission Date: 20150821
  Serious: Yes (Disabling, Other)
  Sender: FDA-Public Use
  Company Number: CA-FRI-1000073869

PATIENT
  Age: 67 Year
  Sex: Male
  Weight: 83.9 kg

DRUGS (25)
  1. METOPROLOL [Concomitant]
     Active Substance: METOPROLOL
  2. LANTUS [Concomitant]
     Active Substance: INSULIN GLARGINE
  3. AMLODIPINE [Concomitant]
     Active Substance: AMLODIPINE BESYLATE
  4. CITALOPRAM [Concomitant]
     Active Substance: CITALOPRAM HYDROBROMIDE
  5. IRON [Concomitant]
     Active Substance: IRON
  6. LOPRESSOR [Concomitant]
     Active Substance: METOPROLOL TARTRATE
  7. ZIAGEN [Concomitant]
     Active Substance: ABACAVIR SULFATE
  8. OXEZE TURBUHALER [Concomitant]
  9. ROFLUMILAST [Suspect]
     Active Substance: ROFLUMILAST
     Indication: CHRONIC OBSTRUCTIVE PULMONARY DISEASE
     Dosage: 500 MCG
     Route: 065
     Dates: start: 20110419
  10. CELEXA [Suspect]
     Active Substance: CITALOPRAM HYDROBROMIDE
     Indication: MAJOR DEPRESSION
     Dosage: 1 DF
     Route: 065
     Dates: start: 20140508
  11. 3TC [Concomitant]
     Active Substance: LAMIVUDINE
  12. SPIRIVA [Concomitant]
     Active Substance: TIOTROPIUM BROMIDE MONOHYDRATE
  13. NEXIUM [Concomitant]
     Active Substance: ESOMEPRAZOLE MAGNESIUM
  14. OXAZEPAM. [Concomitant]
     Active Substance: OXAZEPAM
  15. REPAGLINIDE. [Concomitant]
     Active Substance: REPAGLINIDE
  16. TRADJENTA [Concomitant]
     Active Substance: LINAGLIPTIN
  17. ROSUVASTATIN [Concomitant]
     Active Substance: ROSUVASTATIN
  18. TAMSULOSIN [Concomitant]
     Active Substance: TAMSULOSIN
  19. QVAR [Concomitant]
     Active Substance: BECLOMETHASONE DIPROPIONATE
  20. ACETYLSALICYLIC ACID [Concomitant]
     Active Substance: ASPIRIN
  21. AVODART [Concomitant]
     Active Substance: DUTASTERIDE
  22. CALCIUM [Concomitant]
     Active Substance: CALCIUM
  23. EZETROL [Concomitant]
     Active Substance: EZETIMIBE
  24. ISENTRESS [Concomitant]
     Active Substance: RALTEGRAVIR POTASSIUM
  25. LOSARTAN [Concomitant]
     Active Substance: LOSARTAN

REACTIONS (3)
  - Condition aggravated [Unknown]
  - Drug interaction [Not Recovered/Not Resolved]
  - Essential tremor [Unknown]

NARRATIVE: CASE EVENT DATE: 20140905
